FAERS Safety Report 10982272 (Version 1)
Quarter: 2015Q2

REPORT INFORMATION
  Report Type: Spontaneous
  Country: US (occurrence: US)
  Receive Date: 20150403
  Receipt Date: 20150403
  Transmission Date: 20150821
  Serious: Yes (Hospitalization)
  Sender: FDA-Public Use
  Company Number: US-ROCHE-1559553

PATIENT
  Sex: Female

DRUGS (3)
  1. XELODA [Suspect]
     Active Substance: CAPECITABINE
     Indication: BLADDER TRANSITIONAL CELL CARCINOMA
     Dosage: SHORT COURSE
     Route: 065
     Dates: start: 2015
  2. CISPLATIN. [Concomitant]
     Active Substance: CISPLATIN
  3. 5-FU [Concomitant]
     Active Substance: FLUOROURACIL

REACTIONS (1)
  - Pleural effusion [Unknown]

NARRATIVE: CASE EVENT DATE: 201503
